FAERS Safety Report 14114048 (Version 4)
Quarter: 2017Q4

REPORT INFORMATION
  Report Type: Report from Study
  Country: DE (occurrence: DE)
  Receive Date: 20171023
  Receipt Date: 20171031
  Transmission Date: 20180321
  Serious: Yes (Other)
  Sender: FDA-Public Use
  Company Number: DE-BRISTOL-MYERS SQUIBB COMPANY-BMS-2017-093228

PATIENT
  Age: 43 Year
  Sex: Female
  Weight: 90 kg

DRUGS (10)
  1. BLINDED IPILIMUMAB [Suspect]
     Active Substance: IPILIMUMAB
     Indication: MALIGNANT MELANOMA
     Dosage: UNK
     Route: 065
     Dates: start: 20160811
  2. BETAGALEN [Concomitant]
     Indication: ADVERSE EVENT
     Dosage: UNK
     Route: 062
     Dates: start: 20170711
  3. BUDESONID [Concomitant]
     Active Substance: BUDESONIDE
     Indication: ADVERSE EVENT
     Route: 048
  4. HYDROCORTISONE. [Concomitant]
     Active Substance: HYDROCORTISONE
     Indication: ADVERSE EVENT
     Dosage: UNK
     Route: 062
     Dates: start: 20170314
  5. ACC AKUT [Concomitant]
     Active Substance: ACETYLCYSTEINE
     Indication: PRODUCT USED FOR UNKNOWN INDICATION
     Dosage: UNK
     Route: 048
     Dates: start: 20170102
  6. IBUPROFEN. [Concomitant]
     Active Substance: IBUPROFEN
     Indication: ADVERSE EVENT
     Route: 048
  7. SALBUHALER [Concomitant]
     Indication: ADVERSE EVENT
     Dosage: 0.1 MG, UNK
     Route: 065
     Dates: start: 20170117
  8. BLINDED PLACEBO [Suspect]
     Active Substance: INVESTIGATIONAL PRODUCT
     Indication: MALIGNANT MELANOMA
     Dosage: UNK
     Route: 065
     Dates: start: 20160811
  9. BLINDED NIVOLUMAB [Suspect]
     Active Substance: NIVOLUMAB
     Indication: MALIGNANT MELANOMA
     Dosage: UNK
     Route: 065
     Dates: start: 20160811
  10. VITAMIN B [Concomitant]
     Active Substance: VITAMIN B
     Indication: PROPHYLAXIS
     Dosage: UNK
     Route: 048
     Dates: start: 20170126

REACTIONS (1)
  - Mastocytosis [Not Recovered/Not Resolved]

NARRATIVE: CASE EVENT DATE: 20170826
